FAERS Safety Report 11122501 (Version 1)
Quarter: 2015Q2

REPORT INFORMATION
  Report Type: Spontaneous
  Country: FR (occurrence: FR)
  Receive Date: 20150519
  Receipt Date: 20150519
  Transmission Date: 20150821
  Serious: Yes (Other)
  Sender: FDA-Public Use
  Company Number: FR-ABBVIE-15K-056-1391380-00

PATIENT
  Age: 31 Year
  Sex: Female

DRUGS (5)
  1. IMUREL [Suspect]
     Active Substance: AZATHIOPRINE SODIUM
     Indication: CROHN^S DISEASE
     Route: 048
     Dates: start: 2010, end: 2014
  2. RIFINAH [Suspect]
     Active Substance: ISONIAZID\RIFAMPIN
     Indication: PRODUCT USED FOR UNKNOWN INDICATION
     Route: 065
     Dates: start: 20150225
  3. IMUREL [Suspect]
     Active Substance: AZATHIOPRINE SODIUM
     Route: 048
     Dates: start: 20150115
  4. HUMIRA [Suspect]
     Active Substance: ADALIMUMAB
     Indication: CROHN^S DISEASE
     Route: 058
     Dates: start: 20150319
  5. IMUREL [Suspect]
     Active Substance: AZATHIOPRINE SODIUM
     Route: 048
     Dates: start: 20150402, end: 20150415

REACTIONS (1)
  - Neutropenia [Unknown]

NARRATIVE: CASE EVENT DATE: 20150325
